FAERS Safety Report 12340355 (Version 1)
Quarter: 2016Q2

REPORT INFORMATION
  Report Type: Report from Study
  Country: DE (occurrence: DE)
  Receive Date: 20160506
  Receipt Date: 20160506
  Transmission Date: 20160815
  Serious: No
  Sender: FDA-Public Use
  Company Number: PHHY2016DE061612

PATIENT
  Sex: Male

DRUGS (1)
  1. TASIGNA [Suspect]
     Active Substance: NILOTINIB
     Indication: CHRONIC MYELOID LEUKAEMIA
     Dosage: 600 MG DAILY (DISTRIBUTED TO 2 DOSES/DAY)
     Route: 065

REACTIONS (3)
  - Laryngeal disorder [Unknown]
  - Tremor [Unknown]
  - Overdose [Unknown]
